FAERS Safety Report 22217462 (Version 1)
Quarter: 2023Q2

REPORT INFORMATION
  Report Type: Spontaneous
  Country: GB (occurrence: GB)
  Receive Date: 20230417
  Receipt Date: 20230417
  Transmission Date: 20230722
  Serious: Yes (Other)
  Sender: FDA-Public Use
  Company Number: GB-ALKEM LABORATORIES LIMITED-GB-ALKEM-2023-00401

PATIENT
  Sex: Male

DRUGS (2)
  1. ARIPIPRAZOLE [Suspect]
     Active Substance: ARIPIPRAZOLE
     Indication: Intellectual disability
     Dosage: UNK
     Route: 065
  2. ARIPIPRAZOLE [Suspect]
     Active Substance: ARIPIPRAZOLE
     Indication: Autism spectrum disorder

REACTIONS (11)
  - Oculogyric crisis [Unknown]
  - Parkinson^s disease [Recovered/Resolved]
  - Wheelchair user [Recovered/Resolved]
  - Dysarthria [Recovered/Resolved]
  - Stereotypy [Recovered/Resolved]
  - Dopamine dysregulation syndrome [Recovered/Resolved]
  - Torticollis [Recovered/Resolved]
  - Eyelid ptosis [Recovered/Resolved]
  - Mobility decreased [Recovered/Resolved]
  - Extrapyramidal disorder [Unknown]
  - Tremor [Recovered/Resolved]
